FAERS Safety Report 4487670-7 (Version None)
Quarter: 2004Q4

REPORT INFORMATION
  Report Type: 
  Country: None (occurrence: None)
  Receive Date: 20041025
  Receipt Date: 20041018
  Transmission Date: 20050328
  Serious: Yes (Life-Threatening)
  Sender: FDA-Public Use
  Company Number: 2004-121331-NL

PATIENT
  Age: 61 Year
  Sex: Male

DRUGS (3)
  1. DANAPAROID SODIUM [Suspect]
     Indication: DISSEMINATED INTRAVASCULAR COAGULATION
     Dosage: 2500 ANTILXA/2500 ANTI XA/1250 ANTI-XA INTRAVENOUS DRIP
     Route: 042
     Dates: start: 20040510, end: 20040516
  2. DANAPAROID SODIUM [Suspect]
     Indication: DISSEMINATED INTRAVASCULAR COAGULATION
     Dosage: 2500 ANTILXA/2500 ANTI XA/1250 ANTI-XA INTRAVENOUS DRIP
     Route: 042
     Dates: start: 20040618, end: 20040712
  3. DANAPAROID SODIUM [Suspect]
     Indication: DISSEMINATED INTRAVASCULAR COAGULATION
     Dosage: 2500 ANTILXA/2500 ANTI XA/1250 ANTI-XA INTRAVENOUS DRIP
     Route: 042
     Dates: start: 20040713, end: 20040719

REACTIONS (4)
  - ANAEMIA [None]
  - GINGIVAL BLEEDING [None]
  - HAEMATURIA [None]
  - HEPATIC FUNCTION ABNORMAL [None]
